FAERS Safety Report 9280388 (Version 1)
Quarter: 2013Q2

REPORT INFORMATION
  Report Type: Spontaneous
  Country: US (occurrence: US)
  Receive Date: 20130509
  Receipt Date: 20130509
  Transmission Date: 20140414
  Serious: No
  Sender: FDA-Public Use
  Company Number: US-BAYER-2013-057880

PATIENT
  Age: 15 Year
  Sex: Female
  Weight: 72.56 kg

DRUGS (1)
  1. MIDOL EXTENDED RELIEF CAPLET [Suspect]
     Indication: DYSMENORRHOEA
     Dosage: 1 DF, BID
     Route: 048
     Dates: start: 20130411, end: 20130417

REACTIONS (1)
  - Drug ineffective [None]
